FAERS Safety Report 14636525 (Version 1)
Quarter: 2018Q1

REPORT INFORMATION
  Report Type: Spontaneous
  Country: US (occurrence: US)
  Receive Date: 20180314
  Receipt Date: 20180314
  Transmission Date: 20180509
  Serious: Yes (Other)
  Sender: FDA-Public Use
  Company Number: US-ASTRAZENECA-2018SE30181

PATIENT
  Age: 17249 Day
  Sex: Male

DRUGS (16)
  1. ZOFRAN [Concomitant]
     Active Substance: ONDANSETRON HYDROCHLORIDE
  2. ROPINIROLE HYDROCHLORIDE. [Concomitant]
     Active Substance: ROPINIROLE HYDROCHLORIDE
  3. SEROQUEL [Suspect]
     Active Substance: QUETIAPINE FUMARATE
     Route: 048
  4. DULOXETINE. [Concomitant]
     Active Substance: DULOXETINE
  5. GUAIFENESIN. [Concomitant]
     Active Substance: GUAIFENESIN
  6. PHENYLEPHRINE HYDROCHLORIDE. [Concomitant]
     Active Substance: PHENYLEPHRINE HYDROCHLORIDE
  7. TRAZODONE [Concomitant]
     Active Substance: TRAZODONE HYDROCHLORIDE
  8. PROTONIX [Concomitant]
     Active Substance: PANTOPRAZOLE SODIUM
  9. FLEXERIL [Concomitant]
     Active Substance: CYCLOBENZAPRINE HYDROCHLORIDE
  10. OMEPRAZOLE. [Suspect]
     Active Substance: OMEPRAZOLE
  11. VIVITROL [Suspect]
     Active Substance: NALTREXONE
     Indication: ALCOHOLISM
     Route: 030
     Dates: start: 20170227, end: 201802
  12. ALBUTEROL. [Concomitant]
     Active Substance: ALBUTEROL
  13. CLARITIN [Concomitant]
     Active Substance: LORATADINE
  14. AMITEX [Concomitant]
  15. ANTIVERT [Concomitant]
     Active Substance: MECLIZINE HYDROCHLORIDE
  16. IRON [Concomitant]
     Active Substance: IRON

REACTIONS (1)
  - Generalised tonic-clonic seizure [Unknown]

NARRATIVE: CASE EVENT DATE: 20180103
